FAERS Safety Report 9157038 (Version 1)
Quarter: 2013Q1

REPORT INFORMATION
  Report Type: Spontaneous
  Country: US (occurrence: US)
  Receive Date: 20130312
  Receipt Date: 20130312
  Transmission Date: 20140127
  Serious: Yes (Other)
  Sender: FDA-Public Use
  Company Number: US-NAPPMUNDI-USA-2013-0099657

PATIENT
  Sex: Male

DRUGS (2)
  1. OXYCONTIN (NDA 22-272) [Suspect]
     Indication: PAIN
     Dosage: UNK UNK, TID
  2. REVLIMID [Suspect]
     Indication: PLASMA CELL MYELOMA
     Dosage: 25 MG, 14 IN 21 DAYS
     Route: 048
     Dates: start: 20130202

REACTIONS (5)
  - Intentional drug misuse [Unknown]
  - Arrhythmia [Unknown]
  - Palpitations [Unknown]
  - Abdominal discomfort [Unknown]
  - Inadequate analgesia [Unknown]
